FAERS Safety Report 5874458-5 (Version None)
Quarter: 2008Q3

REPORT INFORMATION
  Report Type: 
  Country: None (occurrence: None)
  Receive Date: 20080908
  Receipt Date: 20080829
  Transmission Date: 20090109
  Serious: Yes (Other)
  Sender: FDA-Public Use
  Company Number: AU-PFIZER INC-2008072815

PATIENT
  Age: 52 Year
  Sex: Male

DRUGS (7)
  1. LIPITOR [Suspect]
     Route: 048
     Dates: start: 20080701
  2. COVERSYL [Concomitant]
  3. ENOXAPARIN SODIUM [Concomitant]
  4. MOBIC [Concomitant]
  5. ANTIEMETICS AND ANTINAUSEANTS [Concomitant]
  6. ANALGESICS [Concomitant]
  7. ANTIBIOTICS [Concomitant]

REACTIONS (5)
  - BLOOD CREATINE PHOSPHOKINASE INCREASED [None]
  - BONE GRAFT [None]
  - CONTUSION [None]
  - MUSCULOSKELETAL PAIN [None]
  - NEOPLASM [None]
